FAERS Safety Report 13442385 (Version 3)
Quarter: 2017Q3

REPORT INFORMATION
  Report Type: Spontaneous
  Country: MX (occurrence: MX)
  Receive Date: 20170414
  Receipt Date: 20170720
  Transmission Date: 20171127
  Serious: Yes (Hospitalization)
  Sender: FDA-Public Use
  Company Number: MX-GUERBET-MX-20170020

PATIENT
  Age: 63 Year
  Sex: Female
  Weight: 76 kg

DRUGS (4)
  1. OPTIRAY 320 [Suspect]
     Active Substance: IOVERSOL
     Indication: COMPUTERISED TOMOGRAM
     Route: 042
     Dates: start: 20170313, end: 20170313
  2. FULVESTRANT. [Concomitant]
     Active Substance: FULVESTRANT
     Indication: INVESTIGATION
     Route: 030
     Dates: start: 20161016
  3. CAPTOPRIL. [Concomitant]
     Active Substance: CAPTOPRIL
     Indication: HYPERTENSION
     Route: 048
  4. DEXKETOPROFEN TROMETAMOL [Concomitant]
     Active Substance: DEXKETOPROFEN TROMETAMOL
     Indication: PAIN
     Route: 048

REACTIONS (6)
  - Electrocardiogram abnormal [Recovered/Resolved]
  - Feeling cold [Recovered/Resolved]
  - Tachycardia [Recovered/Resolved]
  - Pyrexia [Recovered/Resolved]
  - Nausea [Recovered/Resolved]
  - Chills [Recovered/Resolved]

NARRATIVE: CASE EVENT DATE: 20170313
